FAERS Safety Report 7040515-3 (Version None)
Quarter: 2010Q4

REPORT INFORMATION
  Report Type: 
  Country: None (occurrence: None)
  Receive Date: 20101008
  Receipt Date: 20101008
  Transmission Date: 20110411
  Serious: Yes (Disabling)
  Sender: FDA-Public Use
  Company Number: None

PATIENT
  Age: 47 Year
  Sex: Female
  Weight: 66.8 kg

DRUGS (1)
  1. TRAZODONE HCL [Suspect]
     Indication: INSOMNIA
     Dosage: 25-50-75 MG DAILY ORAL
     Route: 048
     Dates: start: 20080101

REACTIONS (3)
  - CARDIAC VENTRICULAR DISORDER [None]
  - DRUG TOLERANCE DECREASED [None]
  - NEUROPATHY PERIPHERAL [None]
